FAERS Safety Report 24182433 (Version 1)
Quarter: 2024Q3

REPORT INFORMATION
  Report Type: Report from Study
  Country: US (occurrence: None)
  Receive Date: 20240807
  Receipt Date: 20240807
  Transmission Date: 20241017
  Serious: Yes (Other)
  Sender: ASTRAZENECA
  Company Number: 2023A004237

PATIENT
  Sex: Female

DRUGS (1)
  1. LYNPARZA [Suspect]
     Active Substance: OLAPARIB
     Indication: Ovarian cancer
     Route: 048
     Dates: start: 20210619

REACTIONS (6)
  - Intestinal obstruction [Unknown]
  - Pain [Unknown]
  - Swelling [Unknown]
  - Decreased appetite [Unknown]
  - Vomiting [Unknown]
  - Product dose omission issue [Unknown]
